FAERS Safety Report 17702971 (Version 3)
Quarter: 2021Q2

REPORT INFORMATION
  Report Type: Spontaneous
  Country: US (occurrence: US)
  Receive Date: 20200424
  Receipt Date: 20210511
  Transmission Date: 20210716
  Serious: Yes (Death)
  Sender: FDA-Public Use
  Company Number: US-TEVA-2020-US-1225083

PATIENT
  Age: 72 Year
  Sex: Male
  Weight: 103.4 kg

DRUGS (37)
  1. DIOVAN [Suspect]
     Active Substance: VALSARTAN
     Indication: HYPERTENSION
     Route: 065
     Dates: start: 201404, end: 201407
  2. TRAMADOL HCL [Concomitant]
     Active Substance: TRAMADOL HYDROCHLORIDE
     Indication: PAIN
     Dosage: AS NEEDED
     Route: 048
     Dates: start: 20160511
  3. VALIUM [Concomitant]
     Active Substance: DIAZEPAM
     Indication: TINNITUS
     Dosage: AS NEEDED
     Route: 048
     Dates: start: 20140915
  4. EPIPEN [Concomitant]
     Active Substance: EPINEPHRINE
     Indication: ANAPHYLACTIC REACTION
     Dosage: 0.3 MG/0.3 ML (1:1000)
     Route: 030
  5. INDAPAMIDE. [Concomitant]
     Active Substance: INDAPAMIDE
     Indication: HYPERTENSION
     Dosage: IN THE MORNING
     Route: 048
  6. AMLODIPINE BENZAPRIL [Concomitant]
     Active Substance: AMLODIPINE BESYLATE\BENAZEPRIL HYDROCHLORIDE
     Indication: HYPERTENSION
     Dosage: 20 MILLIGRAM DAILY;
     Route: 065
     Dates: start: 201004, end: 201212
  7. PREDNISONE. [Concomitant]
     Active Substance: PREDNISONE
     Indication: INFLAMMATION
     Dosage: 10 MILLIGRAM DAILY;
     Route: 065
     Dates: start: 201007, end: 201610
  8. VALSARTAN TEVA [Suspect]
     Active Substance: VALSARTAN
     Indication: HYPERTENSION
     Route: 065
     Dates: start: 20150123, end: 20160316
  9. DIOVAN [Suspect]
     Active Substance: VALSARTAN
     Route: 048
     Dates: start: 20160112, end: 20160504
  10. VALSARTAN AUROBINDO [Suspect]
     Active Substance: VALSARTAN
     Indication: HYPERTENSION
     Route: 065
     Dates: start: 20150916, end: 20180325
  11. VITAMIN B COMPLEX [Concomitant]
     Active Substance: CYANOCOBALAMIN\DEXPANTHENOL\NIACINAMIDE\PYRIDOXINE HYDROCHLORIDE\RIBOFLAVIN 5^-PHOSPHATE SODIUM\THIAMINE HYDROCHLORIDE\VITAMIN B COMPLEX
     Route: 048
     Dates: start: 20160418
  12. LABETALOL HCL [Concomitant]
     Active Substance: LABETALOL HYDROCHLORIDE
     Indication: HYPERTENSION
     Route: 048
     Dates: start: 201403, end: 201702
  13. VEETID [Concomitant]
     Dosage: 250 MILLIGRAM DAILY; FOR TWO WEEKS
     Route: 048
  14. DIAZEPAM. [Concomitant]
     Active Substance: DIAZEPAM
     Indication: SLEEP DISORDER
     Dosage: AS NEEDED
     Route: 065
  15. DIOVAN [Suspect]
     Active Substance: VALSARTAN
     Route: 048
  16. INDAPAMIDE. [Concomitant]
     Active Substance: INDAPAMIDE
     Indication: FLUID RETENTION
     Dosage: 2.5 MILLIGRAM DAILY;
     Route: 065
     Dates: start: 201001, end: 201804
  17. CARDURA [Concomitant]
     Active Substance: DOXAZOSIN MESYLATE
     Indication: HYPERTENSION
     Route: 048
  18. TYLENOL [Concomitant]
     Active Substance: ACETAMINOPHEN
     Route: 048
  19. VALSARTAN SANDOZ [Suspect]
     Active Substance: VALSARTAN
     Route: 065
  20. LABETALOL HCL [Concomitant]
     Active Substance: LABETALOL HYDROCHLORIDE
     Route: 048
  21. VALSARTAN SANDOZ [Suspect]
     Active Substance: VALSARTAN
     Route: 065
  22. VALSARTAN SOLCO [Suspect]
     Active Substance: VALSARTAN
     Indication: HYPERTENSION
     Route: 065
     Dates: start: 20150110, end: 20180316
  23. VALSARTAN SOLCO [Suspect]
     Active Substance: VALSARTAN
     Route: 065
     Dates: start: 20160717, end: 20180316
  24. DIOVAN [Suspect]
     Active Substance: VALSARTAN
     Route: 048
     Dates: start: 20150123, end: 20180417
  25. MUPIROCIN. [Concomitant]
     Active Substance: MUPIROCIN
     Dosage: APPLY TO EACH NOSTRIL TWICE A DAY FOR 5 DAYS
     Route: 065
  26. MAGNESIUM GLUCONATE [Concomitant]
     Active Substance: MAGNESIUM GLUCONATE
     Dosage: EVERY AT BED TIME
     Route: 048
     Dates: start: 20180418
  27. CALCITRATE [Concomitant]
     Active Substance: CALCIUM CITRATE
     Dosage: EVERY MORNING BEFORE BREAKFAST
     Route: 048
  28. CABOMETYX [Concomitant]
     Active Substance: CABOZANTINIB S-MALATE
     Route: 048
  29. LIORESAL [Concomitant]
     Active Substance: BACLOFEN
     Route: 048
  30. NEURONTIN [Concomitant]
     Active Substance: GABAPENTIN
     Dosage: EVERY EVENING AS NEEDED
     Route: 048
  31. SPIRONOLACTONE HYDROCHLOROTHIAZIDE [Concomitant]
     Dosage: SPIRONOLACTONE 25 MG AND  HYDROCHLOROTHIAZIDE 25 MG
     Dates: start: 20160416
  32. ADVIL [Concomitant]
     Active Substance: IBUPROFEN
     Route: 065
  33. FLEXERIL [Concomitant]
     Active Substance: CYCLOBENZAPRINE HYDROCHLORIDE
     Indication: MUSCLE SPASMS
     Dosage: NIGHTLY AS NEEDED
     Route: 048
  34. THORAZINE [Concomitant]
     Active Substance: CHLORPROMAZINE
     Dosage: 6.25 MILLIGRAM DAILY;
     Route: 048
  35. VITAMIN D3 [Concomitant]
     Active Substance: CHOLECALCIFEROL
     Indication: VITAMIN D DEFICIENCY
     Route: 048
     Dates: start: 20160418
  36. ACETAMINOPHEN. [Concomitant]
     Active Substance: ACETAMINOPHEN
     Dosage: AS NEEDED
     Route: 048
  37. ATENOLOL. [Concomitant]
     Active Substance: ATENOLOL
     Indication: HYPERTENSION
     Route: 048
     Dates: start: 201301, end: 201402

REACTIONS (2)
  - Respiratory failure [Fatal]
  - Renal cancer metastatic [Fatal]
